FAERS Safety Report 20853814 (Version 1)
Quarter: 2022Q2

REPORT INFORMATION
  Report Type: Spontaneous
  Country: BR (occurrence: BR)
  Receive Date: 20220520
  Receipt Date: 20220520
  Transmission Date: 20220720
  Serious: Yes (Other)
  Sender: FDA-Public Use
  Company Number: BR-SA-SAC20220519000282

PATIENT
  Age: 2 Year
  Sex: Male
  Weight: 13 kg

DRUGS (2)
  1. LANTUS SOLOSTAR [Suspect]
     Active Substance: INSULIN GLARGINE
     Indication: Blood glucose
     Dosage: UNK, QD
     Route: 058
     Dates: start: 20211104
  2. FIASP [Concomitant]
     Active Substance: INSULIN ASPART
     Indication: Blood glucose
     Dosage: UNK, TID
     Route: 058
     Dates: start: 20211104

REACTIONS (1)
  - Seizure [Recovering/Resolving]

NARRATIVE: CASE EVENT DATE: 20220513
